FAERS Safety Report 6280746-3 (Version None)
Quarter: 2009Q3

REPORT INFORMATION
  Report Type: 
  Country: None (occurrence: None)
  Receive Date: 20090724
  Receipt Date: 20081229
  Transmission Date: 20100115
  Serious: No
  Sender: FDA-Public Use
  Company Number: A0761905A

PATIENT
  Age: 70 Year
  Sex: Female

DRUGS (9)
  1. AVANDIA [Suspect]
     Dosage: 4MG PER DAY
     Route: 048
     Dates: start: 20080901
  2. GLUCOSAMINE [Concomitant]
  3. ONE A DAY VITAMIN [Concomitant]
  4. DIOVAN [Concomitant]
  5. VERAPAMIL [Concomitant]
  6. LEVOXYL [Concomitant]
  7. GLYBURIDE [Concomitant]
  8. DICYCLOMINE [Concomitant]
  9. ASPIRIN [Concomitant]

REACTIONS (5)
  - BACK PAIN [None]
  - CHEST DISCOMFORT [None]
  - MALAISE [None]
  - OEDEMA PERIPHERAL [None]
  - PAIN IN EXTREMITY [None]
